FAERS Safety Report 24050779 (Version 7)
Quarter: 2025Q3

REPORT INFORMATION
  Report Type: Report from Study
  Country: EU (occurrence: EU)
  Receive Date: 20240704
  Receipt Date: 20250716
  Transmission Date: 20251020
  Serious: Yes (Hospitalization, Other)
  Sender: CSL BEHRING
  Company Number: EU-BEH-2024173281

PATIENT
  Age: 45 Year
  Sex: Male
  Weight: 97 kg

DRUGS (8)
  1. IDELVION [Suspect]
     Active Substance: COAGULATION FACTOR IX RECOMBINANT HUMAN
     Indication: Factor IX deficiency
     Dosage: 4000 IU, QW(=55 IU/KG ONCE PER WEEK ON TUESDAY)
     Route: 065
     Dates: start: 20220301, end: 20230131
  2. IDELVION [Suspect]
     Active Substance: COAGULATION FACTOR IX RECOMBINANT HUMAN
     Indication: Factor IX deficiency
     Dosage: 4000 IU, QW(=55 IU/KG ONCE PER WEEK ON TUESDAY)
     Route: 065
     Dates: start: 20220301, end: 20230131
  3. ALDACTONE [Concomitant]
     Active Substance: SPIRONOLACTONE
     Dosage: 150 MG, QD
  4. FUROSEMIDE [Concomitant]
     Active Substance: FUROSEMIDE
     Dosage: 80 MG, QD
  5. COAGULATION FACTOR IX HUMAN [Concomitant]
     Active Substance: COAGULATION FACTOR IX HUMAN
     Indication: Factor IX deficiency
  6. OCTREOTIDE [Concomitant]
     Active Substance: OCTREOTIDE
  7. ADRENALIN [Concomitant]
     Active Substance: EPINEPHRINE
  8. PIPERACILLIN SODIUM\TAZOBACTAM SODIUM [Concomitant]
     Active Substance: PIPERACILLIN SODIUM\TAZOBACTAM SODIUM

REACTIONS (6)
  - Gastrointestinal haemorrhage [Fatal]
  - Cirrhosis alcoholic [Fatal]
  - Hepatic failure [Fatal]
  - Traumatic haematoma [Unknown]
  - Rhabdomyolysis [Unknown]
  - Pain [Unknown]

NARRATIVE: CASE EVENT DATE: 20240101
